FAERS Safety Report 9688972 (Version 1)
Quarter: 2013Q4

REPORT INFORMATION
  Report Type: Spontaneous
  Country: US (occurrence: US)
  Receive Date: 20131114
  Receipt Date: 20131114
  Transmission Date: 20140711
  Serious: Yes (Hospitalization)
  Sender: FDA-Public Use
  Company Number: US-GLAXOSMITHKLINE-A1049577A

PATIENT
  Age: 59 Year
  Sex: Male

DRUGS (1)
  1. PROMACTA [Suspect]
     Indication: HEPATITIS C
     Dosage: 25MG PER DAY
     Route: 048
     Dates: start: 20130628

REACTIONS (4)
  - Pneumonia [Unknown]
  - Decreased immune responsiveness [Unknown]
  - Local swelling [Unknown]
  - Blood test abnormal [Unknown]
